FAERS Safety Report 17580758 (Version 2)
Quarter: 2020Q2

REPORT INFORMATION
  Report Type: Report from Study
  Country: PL (occurrence: PL)
  Receive Date: 20200325
  Receipt Date: 20200409
  Transmission Date: 20200713
  Serious: Yes (Other)
  Sender: FDA-Public Use
  Company Number: PL-PFIZER INC-2020123828

PATIENT
  Age: 74 Year
  Sex: Male

DRUGS (6)
  1. VENLAFAXINE HCL [Suspect]
     Active Substance: VENLAFAXINE HYDROCHLORIDE
     Indication: ANTIDEPRESSANT THERAPY
     Dosage: UNK
     Route: 065
  2. TAMSULOSIN [Concomitant]
     Active Substance: TAMSULOSIN
     Indication: BENIGN PROSTATIC HYPERPLASIA
     Dosage: UNK
     Route: 065
  3. RIVAROXABAN [Concomitant]
     Active Substance: RIVAROXABAN
     Dosage: UNK
     Route: 065
  4. BISOPROLOL [Concomitant]
     Active Substance: BISOPROLOL
     Dosage: UNK
     Route: 065
  5. PROPAFENONE. [Interacting]
     Active Substance: PROPAFENONE
     Indication: ATRIAL FIBRILLATION
     Dosage: UNK
     Route: 065
  6. PARACETAMOL + TRAMADOL [Concomitant]
     Active Substance: ACETAMINOPHEN\TRAMADOL
     Dosage: UNK
     Route: 065

REACTIONS (4)
  - Dizziness [Unknown]
  - Bradycardia [Unknown]
  - Drug interaction [Unknown]
  - Vision blurred [Unknown]
